FAERS Safety Report 19005741 (Version 1)
Quarter: 2021Q1

REPORT INFORMATION
  Report Type: Spontaneous
  Country: US (occurrence: US)
  Receive Date: 20210314
  Receipt Date: 20210314
  Transmission Date: 20210420
  Serious: No
  Sender: FDA-Public Use
  Company Number: US-TEVA-2021-US-1887193

PATIENT
  Age: 39 Year
  Sex: Female

DRUGS (2)
  1. FREMANEZUMAB [Suspect]
     Active Substance: FREMANEZUMAB
  2. FREMANEZUMAB [Suspect]
     Active Substance: FREMANEZUMAB
     Dates: start: 2020

REACTIONS (2)
  - Urticaria [Unknown]
  - Pruritus [Unknown]
